FAERS Safety Report 10072493 (Version 2)
Quarter: 2014Q2

REPORT INFORMATION
  Report Type: Spontaneous
  Country: US (occurrence: US)
  Receive Date: 20140411
  Receipt Date: 20140411
  Transmission Date: 20141212
  Serious: Yes (Other)
  Sender: FDA-Public Use
  Company Number: US-BEH-2011027845

PATIENT
  Age: 65 Year
  Sex: Female
  Weight: 87 kg

DRUGS (88)
  1. PRIVIGEN [Suspect]
     Dosage: INFUSED 30 G EVERY THREE WEEKS +/- 3 DAYS AT MAXIMUM RATE OF 4.8 ML/KG/HR
     Route: 042
     Dates: start: 20101011
  2. PRIVIGEN [Suspect]
     Dates: start: 20110308
  3. PRIVIGEN [Suspect]
     Dates: start: 20110308
  4. PRIVIGEN [Suspect]
     Dates: start: 20110330
  5. PRIVIGEN [Suspect]
     Indication: IMMUNODEFICIENCY COMMON VARIABLE
     Dates: start: 20110414
  6. PRIVIGEN [Suspect]
     Dates: start: 20110414
  7. PRIVIGEN [Suspect]
     Dates: start: 20110615
  8. PRIVIGEN [Suspect]
     Dates: start: 20110615
  9. PRIVIGEN [Suspect]
     Dosage: INFUSED AT 28 ML PER HR FOR 30 MINUTES
     Route: 042
     Dates: start: 20120117
  10. PRIVIGEN [Suspect]
     Route: 042
  11. PRIVIGEN [Suspect]
     Dosage: 28 ML/HR X 30 MIN., 112 ML/HR X 15 MIN, 223 ML/HR X 15 MIN, 400 ML/HR X 30 MIN.
     Route: 042
     Dates: start: 20121006, end: 20121006
  12. PRIVIGEN [Suspect]
     Dosage: 28 ML/HR X 30 MIN., 112 ML/HR X 15 MIN, 223 ML/HR X 15 MIN, 400 ML/HR X 30 MIN.
     Route: 042
     Dates: start: 20121006, end: 20121006
  13. PRIVIGEN [Suspect]
     Dosage: 10GM VIAL;INFUSE 28ML/HR FOR 30 MIN,THEN 112ML/HR FOR 15 MIN,THEN 223 ML/HR FOR 15 MIN,THEN 400M/HR
     Route: 042
  14. PRIVIGEN [Suspect]
     Dosage: 20 GM VIAL;INFUSE 28ML/HR FOR 30 MIN,THEN 112ML/HR FOR 15 MIN,THEN 223 ML/HR FOR 15 MIN,THEN 400M/HR
     Route: 042
  15. PRIVIGEN [Suspect]
     Dosage: 28 ML/HR X 30 MIN., 112 ML/HR X 15 MIN, 223 ML/HR X 15 MIN, 400 ML/HR X 30 MIN.
     Route: 042
  16. PRIVIGEN [Suspect]
     Dosage: 28 ML/HR X 30 MIN., 112 ML/HR X 15 MIN, 223 ML/HR X 15 MIN, 400 ML/HR X 30 MIN.
     Route: 042
  17. PRIVIGEN [Suspect]
     Dosage: MAX OF 4.8 ML/HOUR
     Route: 042
     Dates: start: 20130911
  18. PRIVIGEN [Suspect]
     Dosage: MAX OF 4.8 ML/HOUR
     Route: 042
     Dates: start: 20130911
  19. PRIVIGEN [Suspect]
     Route: 042
  20. PRIVIGEN [Suspect]
     Route: 042
  21. MINOCYCLINE [Concomitant]
  22. TRAMADOL [Concomitant]
  23. HEPARIN [Concomitant]
  24. CYMBALTA [Concomitant]
  25. SOMA [Concomitant]
  26. ASACOL [Concomitant]
  27. NEXIUM [Concomitant]
  28. VYVANASE [Concomitant]
  29. VYTORIN [Concomitant]
  30. ASTELIN [Concomitant]
  31. CARDIZEM [Concomitant]
  32. BENICAR [Concomitant]
  33. TRAZODONE [Concomitant]
  34. ACTONEL [Concomitant]
  35. ZOFRAN [Concomitant]
  36. PAMINE [Concomitant]
  37. LUNESTA [Concomitant]
  38. CICLOPIROX [Concomitant]
  39. CLINDAMYCIN [Concomitant]
  40. CARMOL [Concomitant]
  41. ACETAMINOPHEN [Concomitant]
  42. DEXAMETHASONE [Concomitant]
  43. TRANSDERM [Concomitant]
  44. VICODIN [Concomitant]
  45. SUMATRIPTAN [Concomitant]
  46. DILTIAZEM [Concomitant]
  47. VITAMIN D3 [Concomitant]
  48. DENAVIR [Concomitant]
  49. ASMANEX [Concomitant]
  50. IMODIUM [Concomitant]
  51. PHAZYME [Concomitant]
  52. BACTROBAN [Concomitant]
  53. ALVESCO [Concomitant]
  54. GAS X [Concomitant]
  55. PATANOL [Concomitant]
  56. MILK OF MAGNESIA [Concomitant]
  57. TUMS [Concomitant]
  58. VENTOLIN [Concomitant]
  59. PEPTO-BISMOL [Concomitant]
  60. MUCINEX [Concomitant]
  61. VYTORIN [Concomitant]
  62. MULTIVITAMIN [Concomitant]
  63. VITAMIN C [Concomitant]
  64. MAGNESIUM [Concomitant]
  65. CO-Q10 [Concomitant]
  66. DIPHENHYDRAMINE [Concomitant]
     Indication: PREMEDICATION
  67. NORMAL SALINE [Concomitant]
  68. SODIUM CHLORIDE [Concomitant]
  69. EPI-PEN [Concomitant]
  70. SUMATRIPTAN SUCCINATE [Concomitant]
  71. ATROVENT [Concomitant]
  72. CALCIUM [Concomitant]
  73. VITAMIN D [Concomitant]
  74. TOPAMAX [Concomitant]
  75. FLUCONAZOLE [Concomitant]
  76. ABILIFY [Concomitant]
  77. AZO STANDARD [Concomitant]
  78. LEXAPRO [Concomitant]
  79. HEPARIN [Concomitant]
  80. LIDOCAINE [Concomitant]
  81. BENZONATATE [Concomitant]
  82. FLORA-Q [Concomitant]
  83. TIROSINT [Concomitant]
  84. VITAMIN B12 [Concomitant]
  85. PROCTOCREAM [Concomitant]
  86. EFFEXOR [Concomitant]
  87. XANAX [Concomitant]
  88. ONDANSETRON [Concomitant]

REACTIONS (19)
  - Respiratory tract infection [Unknown]
  - Lower respiratory tract infection [Unknown]
  - Headache [Unknown]
  - Headache [Unknown]
  - Nausea [Unknown]
  - Fatigue [Unknown]
  - Headache [Unknown]
  - Nausea [Unknown]
  - Headache [Not Recovered/Not Resolved]
  - Back pain [Unknown]
  - Pyrexia [Unknown]
  - Hypertension [Unknown]
  - Upper respiratory tract infection [Unknown]
  - Sinusitis [Unknown]
  - Urinary tract infection [Unknown]
  - Urinary tract infection [Unknown]
  - Haematuria [Unknown]
  - Upper respiratory tract infection [Unknown]
  - Upper respiratory tract infection [Unknown]
